FAERS Safety Report 13338257 (Version 1)
Quarter: 2017Q1

REPORT INFORMATION
  Report Type: Spontaneous
  Country: US (occurrence: US)
  Receive Date: 20170315
  Receipt Date: 20170315
  Transmission Date: 20170428
  Serious: No
  Sender: FDA-Public Use
  Company Number: US-APOTEX-2016AP010520

PATIENT

DRUGS (1)
  1. ROPINIROLE. [Suspect]
     Active Substance: ROPINIROLE
     Indication: OPPOSITIONAL DEFIANT DISORDER
     Dosage: 0.25 MG, UNK
     Route: 065

REACTIONS (4)
  - Drug dispensing error [Unknown]
  - Abnormal behaviour [Unknown]
  - Inappropriate affect [Unknown]
  - Condition aggravated [Unknown]
